FAERS Safety Report 23169145 (Version 1)
Quarter: 2023Q4

REPORT INFORMATION
  Report Type: Spontaneous
  Country: JP (occurrence: JP)
  Receive Date: 20231110
  Receipt Date: 20231110
  Transmission Date: 20240110
  Serious: Yes (Death, Other)
  Sender: FDA-Public Use
  Company Number: JP-GSKJP-JP2023JPN151741AA

PATIENT

DRUGS (1)
  1. DAPRODUSTAT [Suspect]
     Active Substance: DAPRODUSTAT
     Dosage: 2 MG

REACTIONS (4)
  - Myocardial infarction [Fatal]
  - Angina pectoris [Unknown]
  - Chest pain [Unknown]
  - Therapeutic drug monitoring analysis not performed [Unknown]
